FAERS Safety Report 7124802-6 (Version None)
Quarter: 2010Q4

REPORT INFORMATION
  Report Type: 
  Country: None (occurrence: None)
  Receive Date: 20101123
  Receipt Date: 20101123
  Transmission Date: 20110411
  Serious: No
  Sender: FDA-Public Use
  Company Number: None

PATIENT
  Age: 46 Year
  Sex: Female
  Weight: 65.318 kg

DRUGS (1)
  1. LYRICA [Suspect]
     Indication: FIBROMYALGIA
     Dosage: 2 TABS THREE TIMES A DAY PO
     Route: 048
     Dates: start: 20100907, end: 20101122

REACTIONS (2)
  - HYPERSENSITIVITY [None]
  - STRABISMUS [None]
